FAERS Safety Report 20899554 (Version 2)
Quarter: 2022Q2

REPORT INFORMATION
  Report Type: Report from Study
  Country: JP (occurrence: JP)
  Receive Date: 20220601
  Receipt Date: 20220603
  Transmission Date: 20220720
  Serious: Yes (Death, Other)
  Sender: FDA-Public Use
  Company Number: JP-BRISTOL-MYERS SQUIBB COMPANY-BMS-2021-060092

PATIENT
  Age: 61 Year
  Sex: Female
  Weight: 40 kg

DRUGS (6)
  1. YERVOY [Suspect]
     Active Substance: IPILIMUMAB
     Indication: Metastatic renal cell carcinoma
     Dosage: 1 MILLIGRAM/KILOGRAM, ONE TIME DOSE
     Route: 041
     Dates: start: 20210312, end: 20210312
  2. YERVOY [Suspect]
     Active Substance: IPILIMUMAB
     Route: 041
     Dates: start: 20210420, end: 20210420
  3. OPDIVO [Suspect]
     Active Substance: NIVOLUMAB
     Indication: Metastatic renal cell carcinoma
     Dosage: 240 MG
     Route: 041
     Dates: start: 20210312, end: 20210312
  4. OPDIVO [Suspect]
     Active Substance: NIVOLUMAB
     Dosage: UNK
     Route: 041
     Dates: start: 20210420, end: 20210420
  5. ELCATONIN [Suspect]
     Active Substance: ELCATONIN
     Indication: Hypercalcaemia
     Dosage: 40 UNIT
     Route: 041
     Dates: start: 20210315, end: 20210318
  6. ELCATONIN [Suspect]
     Active Substance: ELCATONIN

REACTIONS (6)
  - Decubitus ulcer [Unknown]
  - Hypercalcaemia [Recovered/Resolved]
  - Hypocalcaemia [Unknown]
  - Refusal of treatment by patient [Unknown]
  - Off label use [Unknown]
  - Malignant neoplasm progression [Fatal]

NARRATIVE: CASE EVENT DATE: 20210315
